FAERS Safety Report 6604601-1 (Version None)
Quarter: 2010Q1

REPORT INFORMATION
  Report Type: 
  Country: None (occurrence: None)
  Receive Date: 20100226
  Receipt Date: 20091211
  Transmission Date: 20100710
  Serious: No
  Sender: FDA-Public Use
  Company Number: A0835807A

PATIENT
  Sex: Female

DRUGS (1)
  1. LAMICTAL CD [Suspect]
     Indication: EPILEPSY
     Dosage: 450MG PER DAY

REACTIONS (2)
  - DELIVERY [None]
  - DRUG EXPOSURE DURING PREGNANCY [None]
